FAERS Safety Report 19415127 (Version 8)
Quarter: 2022Q1

REPORT INFORMATION
  Report Type: Report from Study
  Country: US (occurrence: US)
  Receive Date: 20210615
  Receipt Date: 20220218
  Transmission Date: 20220423
  Serious: No
  Sender: FDA-Public Use
  Company Number: NVSC2021US128858

PATIENT
  Age: 62 Year
  Sex: Male
  Weight: 124.7 kg

DRUGS (3)
  1. COSENTYX [Suspect]
     Active Substance: SECUKINUMAB
     Indication: Psoriasis
     Dosage: 300 MG, QMO (EVERY 4 WEEKS)
     Route: 058
     Dates: start: 20180626
  2. COSENTYX [Suspect]
     Active Substance: SECUKINUMAB
     Dosage: 300 MG, QW (Q WEEK FOR FIVE WEEKS AND THEN Q FOUR WEEKS)
     Route: 058
     Dates: start: 20190401
  3. COSENTYX [Suspect]
     Active Substance: SECUKINUMAB
     Dosage: UNK (MAINTENANCE DOSE)
     Route: 065
     Dates: start: 20211117

REACTIONS (7)
  - Psoriasis [Unknown]
  - Skin lesion [Unknown]
  - Pruritus [Unknown]
  - Skin exfoliation [Unknown]
  - Skin depigmentation [Unknown]
  - Actinic keratosis [Unknown]
  - Therapeutic product effect decreased [Unknown]

NARRATIVE: CASE EVENT DATE: 20210526
